FAERS Safety Report 7217888-1 (Version None)
Quarter: 2011Q1

REPORT INFORMATION
  Report Type: 
  Country: None (occurrence: None)
  Receive Date: 20110110
  Receipt Date: 20110104
  Transmission Date: 20110831
  Serious: Yes (Other)
  Sender: FDA-Public Use
  Company Number: B0692771A

PATIENT
  Sex: Male
  Weight: 73 kg

DRUGS (3)
  1. FLUNITRAZEPAM [Suspect]
  2. ALCOHOL [Suspect]
  3. FORMIGRAN [Suspect]

REACTIONS (1)
  - SUICIDE ATTEMPT [None]
